FAERS Safety Report 8965859 (Version 1)
Quarter: 2012Q4

REPORT INFORMATION
  Report Type: Spontaneous
  Country: US (occurrence: None)
  Receive Date: 20121213
  Receipt Date: 20121213
  Transmission Date: 20130627
  Serious: Yes (Other)
  Sender: FDA-Public Use
  Company Number: None

PATIENT
  Sex: Female

DRUGS (1)
  1. ENBREL SURECLICK 50MG/ML AMGEN [Suspect]
     Indication: PSORIATIC ARTHROPATHY
     Dosage: 50MG Every Week SQ
     Route: 058
     Dates: start: 20120430, end: 20121022

REACTIONS (1)
  - Uterine cancer [None]
